FAERS Safety Report 15655928 (Version 2)
Quarter: 2018Q4

REPORT INFORMATION
  Report Type: Report from Study
  Country: None (occurrence: US)
  Receive Date: 20181126
  Receipt Date: 20181208
  Transmission Date: 20190205
  Serious: No
  Sender: FDA-Public Use
  Company Number: US-ABBVIE-18K-163-2564588-00

PATIENT
  Age: 72 Year
  Sex: Male
  Weight: 102.15 kg

DRUGS (5)
  1. HUMALOG [Concomitant]
     Active Substance: INSULIN LISPRO
     Indication: TYPE 1 DIABETES MELLITUS
  2. HUMIRA [Suspect]
     Active Substance: ADALIMUMAB
     Indication: EYE DISORDER
  3. HUMIRA [Suspect]
     Active Substance: ADALIMUMAB
     Indication: UVEITIS
  4. TOUJEO [Concomitant]
     Active Substance: INSULIN GLARGINE
     Indication: TYPE 1 DIABETES MELLITUS
  5. HUMIRA [Suspect]
     Active Substance: ADALIMUMAB
     Indication: RHEUMATOID ARTHRITIS
     Route: 058
     Dates: start: 201809

REACTIONS (11)
  - Eye infection [Recovering/Resolving]
  - Pain [Unknown]
  - Neuropathy peripheral [Unknown]
  - Impaired self-care [Recovering/Resolving]
  - Pruritus [Unknown]
  - Gait disturbance [Not Recovered/Not Resolved]
  - Anxiety [Recovering/Resolving]
  - Loss of personal independence in daily activities [Recovering/Resolving]
  - Polyarthritis [Not Recovered/Not Resolved]
  - Depression [Recovering/Resolving]
  - Drug ineffective [Unknown]

NARRATIVE: CASE EVENT DATE: 2018
